FAERS Safety Report 13025935 (Version 1)
Quarter: 2016Q4

REPORT INFORMATION
  Report Type: Report from Study
  Country: SE (occurrence: SE)
  Receive Date: 20161214
  Receipt Date: 20161214
  Transmission Date: 20170207
  Serious: Yes (Death)
  Sender: FDA-Public Use
  Company Number: SE-ROCHE-1865804

PATIENT

DRUGS (2)
  1. ALTEPLASE [Suspect]
     Active Substance: ALTEPLASE
     Indication: ISCHAEMIC STROKE
     Route: 042
  2. IMATINIB [Concomitant]
     Active Substance: IMATINIB
     Route: 065

REACTIONS (2)
  - Brain oedema [Fatal]
  - Haemorrhagic cerebral infarction [Fatal]
